FAERS Safety Report 6056526-0 (Version None)
Quarter: 2009Q1

REPORT INFORMATION
  Report Type: 
  Country: None (occurrence: None)
  Receive Date: 20090129
  Receipt Date: 20081201
  Transmission Date: 20090719
  Serious: No
  Sender: FDA-Public Use
  Company Number: A0749440A

PATIENT
  Age: 48 Year
  Sex: Female

DRUGS (3)
  1. COMBIVIR [Suspect]
     Indication: DRUG USE FOR UNKNOWN INDICATION
     Dosage: 1TAB TWICE PER DAY
     Route: 048
     Dates: start: 19980901
  2. VIRACEPT [Concomitant]
  3. LIPITOR [Concomitant]

REACTIONS (5)
  - ERYTHEMA [None]
  - FATIGUE [None]
  - LAZINESS [None]
  - OSTEOPOROSIS [None]
  - SENSATION OF HEAVINESS [None]
